FAERS Safety Report 14435271 (Version 1)
Quarter: 2018Q1

REPORT INFORMATION
  Report Type: Spontaneous
  Country: US (occurrence: US)
  Receive Date: 20180125
  Receipt Date: 20180125
  Transmission Date: 20180509
  Serious: No
  Sender: FDA-Public Use
  Company Number: US-ELI_LILLY_AND_COMPANY-US201801009957

PATIENT
  Age: 73 Year
  Sex: Male

DRUGS (3)
  1. HUMALOG [Suspect]
     Active Substance: INSULIN LISPRO
     Indication: TYPE 2 DIABETES MELLITUS
     Dosage: 27 U, TID
     Route: 058
     Dates: start: 2013
  2. HUMALOG [Suspect]
     Active Substance: INSULIN LISPRO
     Dosage: 27 U, TID
     Route: 058
  3. TOUJEO [Concomitant]
     Active Substance: INSULIN GLARGINE
     Indication: TYPE 2 DIABETES MELLITUS
     Dosage: 120 U, EACH MORNING

REACTIONS (4)
  - Visual impairment [Unknown]
  - Presbyopia [Unknown]
  - Product storage error [Unknown]
  - Drug dose omission [Unknown]

NARRATIVE: CASE EVENT DATE: 2013
